FAERS Safety Report 16314674 (Version 1)
Quarter: 2019Q2

REPORT INFORMATION
  Report Type: Report from Study
  Country: None (occurrence: BR)
  Receive Date: 20190515
  Receipt Date: 20190515
  Transmission Date: 20190711
  Serious: Yes (Hospitalization, Disabling, Other)
  Sender: FDA-Public Use
  Company Number: BR-ABBVIE-18K-020-2535780-00

PATIENT
  Age: 76 Year
  Sex: Female
  Weight: 54 kg

DRUGS (2)
  1. HUMIRA [Suspect]
     Active Substance: ADALIMUMAB
     Indication: RHEUMATOID ARTHRITIS
     Route: 058
     Dates: start: 20140901
  2. RIVOTRIL [Concomitant]
     Active Substance: CLONAZEPAM
     Indication: INSOMNIA
     Dosage: START DATE TEXT -AROUND 1999?DOSE TEXT -HALF TABLET
     Route: 048

REACTIONS (29)
  - Eye disorder [Unknown]
  - Dermatitis allergic [Recovered/Resolved]
  - Rheumatic disorder [Unknown]
  - Pain [Unknown]
  - Wrong technique in product usage process [Unknown]
  - Skin laceration [Not Recovered/Not Resolved]
  - Neuralgia [Unknown]
  - Upper limb fracture [Not Recovered/Not Resolved]
  - Hypophagia [Recovering/Resolving]
  - Osteoarthritis [Unknown]
  - Renal disorder [Recovering/Resolving]
  - Fall [Recovered/Resolved]
  - Erythema [Unknown]
  - Weight decreased [Recovering/Resolving]
  - Product administered at inappropriate site [Unknown]
  - Swelling [Not Recovered/Not Resolved]
  - Deformity [Unknown]
  - Dysuria [Recovered/Resolved]
  - Memory impairment [Unknown]
  - Hypersensitivity [Recovered/Resolved]
  - Arthralgia [Unknown]
  - Therapeutic response shortened [Unknown]
  - Cardiac disorder [Not Recovered/Not Resolved]
  - Visual impairment [Not Recovered/Not Resolved]
  - Cerebrovascular accident [Recovered/Resolved]
  - Asthenia [Not Recovered/Not Resolved]
  - Gait disturbance [Unknown]
  - Decreased appetite [Unknown]
  - Pruritus allergic [Recovered/Resolved]

NARRATIVE: CASE EVENT DATE: 201802
